FAERS Safety Report 6864182-4 (Version None)
Quarter: 2010Q3

REPORT INFORMATION
  Report Type: 
  Country: None (occurrence: None)
  Receive Date: 20100721
  Receipt Date: 20080319
  Transmission Date: 20110219
  Serious: No
  Sender: FDA-Public Use
  Company Number: US-PFIZER INC-2008025954

PATIENT
  Sex: Female
  Weight: 69.4 kg

DRUGS (9)
  1. CHANTIX [Suspect]
     Indication: SMOKING CESSATION THERAPY
     Dates: start: 20080319, end: 20080319
  2. TOPAMAX [Concomitant]
  3. LORAZEPAM [Concomitant]
  4. SIMVASTATIN [Concomitant]
  5. CITALOPRAM [Concomitant]
  6. PROTONIX [Concomitant]
  7. ZYPREXA [Concomitant]
  8. LEXAPRO [Concomitant]
  9. HYOSCYAMINE [Concomitant]

REACTIONS (5)
  - ABDOMINAL PAIN UPPER [None]
  - EYE PAIN [None]
  - PAIN [None]
  - RETCHING [None]
  - VOMITING [None]
